FAERS Safety Report 9927948 (Version 3)
Quarter: 2014Q2

REPORT INFORMATION
  Report Type: Spontaneous
  Country: US (occurrence: US)
  Receive Date: 20140227
  Receipt Date: 20140423
  Transmission Date: 20141212
  Serious: No
  Sender: FDA-Public Use
  Company Number: US-PFIZER INC-2014052547

PATIENT
  Age: 59 Year
  Sex: Male
  Weight: 90.7 kg

DRUGS (1)
  1. ESTRING [Suspect]
     Dosage: UNK
     Dates: start: 201312

REACTIONS (3)
  - Exposure via partner [Unknown]
  - Genital discomfort [Unknown]
  - Product quality issue [Unknown]
